FAERS Safety Report 7035184-2 (Version None)
Quarter: 2010Q4

REPORT INFORMATION
  Report Type: 
  Country: None (occurrence: None)
  Receive Date: 20101007
  Receipt Date: 20101007
  Transmission Date: 20110411
  Serious: No
  Sender: FDA-Public Use
  Company Number: None

PATIENT
  Age: 56 Year
  Sex: Female

DRUGS (2)
  1. VASOPRESSIN 20 UNITS [Suspect]
     Indication: NAUSEA
     Dosage: 20 UNITS ONCE IV BOLUS
     Route: 040
     Dates: start: 20100930, end: 20100930
  2. VASOPRESSIN 20 UNITS [Suspect]
     Indication: VOMITING
     Dosage: 20 UNITS ONCE IV BOLUS
     Route: 040
     Dates: start: 20100930, end: 20100930

REACTIONS (2)
  - MEDICATION ERROR [None]
  - WRONG DRUG ADMINISTERED [None]
